FAERS Safety Report 6712687-9 (Version None)
Quarter: 2010Q2

REPORT INFORMATION
  Report Type: 
  Country: None (occurrence: None)
  Receive Date: 20100506
  Receipt Date: 20100428
  Transmission Date: 20101027
  Serious: Yes (Other)
  Sender: FDA-Public Use
  Company Number: US-JNJFOC-20100407891

PATIENT
  Age: 58 Year
  Sex: Male
  Weight: 90.72 kg

DRUGS (4)
  1. EXTRA STRENGTH TYLENOL [Suspect]
     Indication: BACK PAIN
     Dosage: FOR MANY YEARS
     Route: 048
  2. EXTRA STRENGTH TYLENOL [Suspect]
     Indication: PAIN
     Dosage: FOR MANY YEARS
     Route: 048
  3. FLOMAX [Concomitant]
     Indication: PROSTATOMEGALY
     Route: 048
  4. DARVON [Concomitant]
     Indication: BACK PAIN
     Route: 048

REACTIONS (7)
  - COUGH [None]
  - DYSPNOEA [None]
  - FATIGUE [None]
  - PRODUCT QUALITY ISSUE [None]
  - PRODUCT TASTE ABNORMAL [None]
  - PYREXIA [None]
  - WHEEZING [None]
